FAERS Safety Report 7031909-0 (Version None)
Quarter: 2010Q4

REPORT INFORMATION
  Report Type: 
  Country: None (occurrence: None)
  Receive Date: 20101007
  Receipt Date: 20100927
  Transmission Date: 20110411
  Serious: No
  Sender: FDA-Public Use
  Company Number: 2009BI017963

PATIENT
  Age: 59 Year
  Sex: Male

DRUGS (1)
  1. TYSABRI [Suspect]
     Indication: MULTIPLE SCLEROSIS
     Route: 042
     Dates: start: 20080402

REACTIONS (5)
  - FATIGUE [None]
  - INFECTION SUSCEPTIBILITY INCREASED [None]
  - MUSCLE CONTRACTIONS INVOLUNTARY [None]
  - SENSATION OF HEAVINESS [None]
  - URINARY TRACT INFECTION [None]
